FAERS Safety Report 4911119-0 (Version None)
Quarter: 2006Q1

REPORT INFORMATION
  Report Type: 
  Country: None (occurrence: None)
  Receive Date: 20060214
  Receipt Date: 20060208
  Transmission Date: 20060701
  Serious: Yes (Hospitalization)
  Sender: FDA-Public Use
  Company Number: FR-BRISTOL-MYERS SQUIBB COMPANY-13276159

PATIENT
  Age: 28 Year
  Sex: Female
  Weight: 58 kg

DRUGS (3)
  1. SUSTIVA [Suspect]
     Route: 048
     Dates: start: 20051117, end: 20051124
  2. VIREAD [Concomitant]
     Route: 048
     Dates: start: 20051117
  3. EMTRIVA [Concomitant]
     Route: 048
     Dates: start: 20051117

REACTIONS (6)
  - AGGRESSION [None]
  - AGITATION [None]
  - ANXIETY [None]
  - DISORIENTATION [None]
  - ENCEPHALOPATHY [None]
  - HALLUCINATION, AUDITORY [None]
